FAERS Safety Report 5734546-0 (Version None)
Quarter: 2008Q2

REPORT INFORMATION
  Report Type: 
  Country: None (occurrence: None)
  Receive Date: 20080512
  Receipt Date: 20080430
  Transmission Date: 20081010
  Serious: Yes (Other)
  Sender: FDA-Public Use
  Company Number: US-AMGEN-STX267635

PATIENT
  Sex: Male
  Weight: 95.3 kg

DRUGS (5)
  1. ENBREL [Suspect]
     Indication: RHEUMATOID ARTHRITIS
     Route: 058
     Dates: start: 20000710
  2. METHOTREXATE [Concomitant]
     Route: 065
  3. TYLENOL [Concomitant]
     Route: 065
  4. LEUCOVORIN CALCIUM [Concomitant]
     Route: 065
  5. IBUPROFEN [Concomitant]
     Route: 065

REACTIONS (6)
  - ANTIACETYLCHOLINE RECEPTOR ANTIBODY POSITIVE [None]
  - CRANIAL NERVE PARALYSIS [None]
  - DIPLOPIA [None]
  - METABOLIC DISORDER [None]
  - MYASTHENIA GRAVIS [None]
  - PARANEOPLASTIC SYNDROME [None]
